FAERS Safety Report 5981832-5 (Version None)
Quarter: 2008Q4

REPORT INFORMATION
  Report Type: 
  Country: None (occurrence: None)
  Receive Date: 20081202
  Receipt Date: 20081117
  Transmission Date: 20090506
  Serious: Yes (Hospitalization)
  Sender: FDA-Public Use
  Company Number: 2008-03282

PATIENT
  Age: 57 Year
  Sex: Male
  Weight: 98.4 kg

DRUGS (7)
  1. VELCADE [Suspect]
     Indication: MULTIPLE MYELOMA
     Dosage: 1.3 MG/M2, INTRAVENOUS
     Route: 042
     Dates: start: 20040130
  2. THALIDOMIDE [Suspect]
     Indication: MULTIPLE MYELOMA
     Dosage: 50 MG; 100 MG; 150 MG
     Dates: start: 20040226
  3. DEXAMETHASONE TAB [Suspect]
     Indication: MULTIPLE MYELOMA
  4. OXYCONTIN [Concomitant]
  5. MULTIVITAMINS (ERGOCALCIFEROL, PANTHENOL, NICOTINAMIDE, RIBOFLAVIN, TH [Concomitant]
  6. FOLIC ACID [Concomitant]
  7. METOCLOPRAMIDE [Concomitant]

REACTIONS (14)
  - BACK PAIN [None]
  - CONFUSIONAL STATE [None]
  - DEPRESSION [None]
  - DIARRHOEA [None]
  - HEART RATE INCREASED [None]
  - HYPERCALCAEMIA [None]
  - HYPOKALAEMIA [None]
  - HYPOTENSION [None]
  - METABOLIC ENCEPHALOPATHY [None]
  - MOOD ALTERED [None]
  - NO THERAPEUTIC RESPONSE [None]
  - PNEUMONIA [None]
  - RENAL FAILURE [None]
  - SEPSIS [None]
